FAERS Safety Report 22665305 (Version 2)
Quarter: 2023Q4

REPORT INFORMATION
  Report Type: Spontaneous
  Country: FR (occurrence: FR)
  Receive Date: 20230703
  Receipt Date: 20231026
  Transmission Date: 20240109
  Serious: Yes (Life-Threatening)
  Sender: FDA-Public Use
  Company Number: FR-AFSSAPS-LY20224602

PATIENT
  Age: 78 Year
  Sex: Female
  Weight: 85 kg

DRUGS (8)
  1. ALLOPURINOL [Suspect]
     Active Substance: ALLOPURINOL
     Indication: Gout
     Dosage: 100 MILLIGRAM, DAILY
     Route: 048
     Dates: start: 2020, end: 20220203
  2. ALLOPURINOL [Suspect]
     Active Substance: ALLOPURINOL
     Dosage: 150 MILLIGRAM, DAILY
     Route: 048
     Dates: start: 20220203, end: 20220902
  3. ALLOPURINOL [Suspect]
     Active Substance: ALLOPURINOL
     Dosage: 200 MILLIGRAM, DAILY
     Route: 048
     Dates: start: 20220902
  4. CANDESARTAN CILEXETIL [Concomitant]
     Active Substance: CANDESARTAN CILEXETIL
     Indication: Product used for unknown indication
     Dosage: UNK
     Route: 065
  5. PANTOPRAZOLE [Concomitant]
     Active Substance: PANTOPRAZOLE
     Indication: Product used for unknown indication
     Dosage: UNK
     Route: 065
  6. METHOTREXATE [Concomitant]
     Active Substance: METHOTREXATE
     Indication: Product used for unknown indication
     Dosage: UNK
     Route: 065
  7. KARDEGIC [Concomitant]
     Active Substance: ASPIRIN DL-LYSINE
     Indication: Product used for unknown indication
     Dosage: UNK
     Route: 065
  8. FOLIC ACID [Concomitant]
     Active Substance: FOLIC ACID
     Indication: Product used for unknown indication
     Dosage: UNK
     Route: 065

REACTIONS (1)
  - Drug reaction with eosinophilia and systemic symptoms [Recovering/Resolving]

NARRATIVE: CASE EVENT DATE: 20221105
